FAERS Safety Report 5203558-8 (Version None)
Quarter: 2007Q1

REPORT INFORMATION
  Report Type: 
  Country: None (occurrence: None)
  Receive Date: 20070110
  Receipt Date: 20070103
  Transmission Date: 20070707
  Serious: Yes (Other)
  Sender: FDA-Public Use
  Company Number: JP-GLAXOSMITHKLINE-B0287858A

PATIENT
  Age: 18 Year
  Sex: Male
  Weight: 47 kg

DRUGS (11)
  1. PAXIL [Suspect]
     Indication: PANIC DISORDER
     Dosage: 10MG PER DAY
     Route: 048
     Dates: start: 20021126, end: 20021130
  2. FLUVOXAMINE MALEATE [Concomitant]
     Dosage: 50MG PER DAY
     Route: 065
  3. MOSAPRIDE CITRATE [Concomitant]
     Indication: GASTRIC ULCER
     Dosage: 15MG PER DAY
     Route: 048
  4. FAMOTIDINE [Concomitant]
     Indication: GASTRIC ULCER
     Dosage: 20MG PER DAY
     Route: 048
  5. ETIZOLAM [Concomitant]
     Indication: INSOMNIA
     Dosage: .5MG PER DAY
     Route: 048
  6. ANTIBIOTIC-RESISTANT LACTIC ACID BACTERIA [Concomitant]
     Indication: CONSTIPATION
     Dosage: 3G PER DAY
     Route: 048
  7. MAGNESIUM OXIDE [Concomitant]
     Indication: CONSTIPATION
     Dosage: 1G PER DAY
     Route: 048
  8. CLONAZEPAM [Concomitant]
     Dosage: .5MG PER DAY
     Route: 048
  9. BROTIZOLAM [Concomitant]
     Indication: INSOMNIA
     Dosage: 250MCG PER DAY
     Route: 048
  10. DANTROLENE SODIUM [Concomitant]
     Indication: SPINAL CORD INJURY THORACIC
     Dosage: 25MG PER DAY
     Route: 048
  11. LORNOXICAM [Concomitant]
     Indication: SPINAL CORD INJURY THORACIC
     Dosage: 8MG PER DAY
     Route: 048

REACTIONS (14)
  - AGITATION [None]
  - BLOOD PRESSURE INCREASED [None]
  - CHILLS [None]
  - CONFUSIONAL STATE [None]
  - CONVULSION [None]
  - COUGH [None]
  - DISORIENTATION [None]
  - HEADACHE [None]
  - HYPERHIDROSIS [None]
  - MALAISE [None]
  - MYOCLONUS [None]
  - PYREXIA [None]
  - SEROTONIN SYNDROME [None]
  - TACHYCARDIA [None]
